FAERS Safety Report 8814857 (Version 3)
Quarter: 2018Q4

REPORT INFORMATION
  Report Type: Spontaneous
  Country: FR (occurrence: FR)
  Receive Date: 20120928
  Receipt Date: 20181218
  Transmission Date: 20190205
  Serious: Yes (Hospitalization)
  Sender: FDA-Public Use
  Company Number: FR-MERCK-2012SP009662

PATIENT
  Age: 51 Year
  Sex: Male

DRUGS (8)
  1. CYMEVAN IV [Suspect]
     Active Substance: GANCICLOVIR
     Dosage: 250 MG, QD
     Route: 048
     Dates: start: 20110812, end: 20110826
  2. FOSCAVIR [Concomitant]
     Active Substance: FOSCARNET SODIUM
     Indication: PRODUCT USED FOR UNKNOWN INDICATION
  3. ACTHIB [Suspect]
     Active Substance: HAEMOPHILUS B CONJUGATE VACCINE (TETANUS TOXOID CONJUGATE)\HAEMOPHILUS INFLUENZAE TYPE B STRAIN 1482 CAPSULAR POLYSACCHARIDE TETANUS TOXOID CONJUGATE ANTIGEN
     Dosage: UNK
     Dates: start: 20111108, end: 20111108
  4. GLOBULIN, IMMUNE [Suspect]
     Active Substance: HUMAN IMMUNOGLOBULIN G
     Indication: CHRONIC LYMPHOCYTIC LEUKAEMIA
     Dosage: 1 DOSAGE FORM, QW
     Route: 042
     Dates: start: 20111025
  5. CYMEVAN IV [Suspect]
     Active Substance: GANCICLOVIR
     Indication: CYTOMEGALOVIRUS VIRAEMIA
     Dosage: 250 MILLIGRAM, QD
     Route: 048
     Dates: start: 20110715, end: 20110720
  6. ACTHIB [Suspect]
     Active Substance: HAEMOPHILUS B CONJUGATE VACCINE (TETANUS TOXOID CONJUGATE)\HAEMOPHILUS INFLUENZAE TYPE B STRAIN 1482 CAPSULAR POLYSACCHARIDE TETANUS TOXOID CONJUGATE ANTIGEN
     Indication: IMMUNISATION
     Dosage: UNK
     Dates: start: 20110926, end: 20110926
  7. NOXAFIL [Suspect]
     Active Substance: POSACONAZOLE
     Indication: ORAL LICHEN PLANUS
     Dosage: 200 MILLIGRAM, TID
     Dates: start: 20110715, end: 20110926
  8. CORTANCYL [Concomitant]
     Active Substance: PREDNISONE
     Indication: ACUTE GRAFT VERSUS HOST DISEASE
     Dosage: 30 MILLIGRAM, BID
     Dates: start: 20110715, end: 20110926

REACTIONS (3)
  - Anaemia [Recovered/Resolved]
  - Thrombocytopenia [Recovered/Resolved]
  - Leukopenia [Recovered/Resolved]

NARRATIVE: CASE EVENT DATE: 20110719
